FAERS Safety Report 16651707 (Version 1)
Quarter: 2019Q3

REPORT INFORMATION
  Report Type: Spontaneous
  Country: US (occurrence: US)
  Receive Date: 20190730
  Receipt Date: 20190730
  Transmission Date: 20191004
  Serious: No
  Sender: FDA-Public Use
  Company Number: None

PATIENT
  Age: 48 Year
  Sex: Male
  Weight: 78.75 kg

DRUGS (7)
  1. ACETAMINOPHEN. [Concomitant]
     Active Substance: ACETAMINOPHEN
  2. MAPAP [Suspect]
     Active Substance: ACETAMINOPHEN
     Indication: HEADACHE
     Dosage: ?          QUANTITY:4 TABLET(S);?
     Route: 048
     Dates: start: 20181229, end: 20181229
  3. ASPIRIN. [Concomitant]
     Active Substance: ASPIRIN
  4. IBUPROFEN. [Concomitant]
     Active Substance: IBUPROFEN
  5. BENADRYL [Concomitant]
     Active Substance: DIPHENHYDRAMINE HYDROCHLORIDE
  6. LORATADINE. [Concomitant]
     Active Substance: LORATADINE
  7. HEADACHE RELIEF EXTRA STRENGTH [Suspect]
     Active Substance: ACETAMINOPHEN\ASPIRIN\CAFFEINE
     Indication: HEADACHE
     Dosage: ?          QUANTITY:2 TABLET(S);?
     Route: 048
     Dates: start: 20181124, end: 20181124

REACTIONS (3)
  - Oral lichen planus [None]
  - Erythema multiforme [None]
  - Stevens-Johnson syndrome [None]

NARRATIVE: CASE EVENT DATE: 20181124
